FAERS Safety Report 6337236-9 (Version None)
Quarter: 2009Q3

REPORT INFORMATION
  Report Type: 
  Country: None (occurrence: None)
  Receive Date: 20090902
  Receipt Date: 20090826
  Transmission Date: 20100115
  Serious: Yes (Other)
  Sender: FDA-Public Use
  Company Number: US-BIOGENIDEC-2009BI021609

PATIENT
  Age: 55 Year
  Sex: Female

DRUGS (5)
  1. TYSABRI [Suspect]
     Indication: MULTIPLE SCLEROSIS
     Route: 042
     Dates: start: 20090217, end: 20090609
  2. BACLOFEN [Concomitant]
  3. MODAFINIL [Concomitant]
  4. FLUOXETINE [Concomitant]
  5. GABAPENTIN [Concomitant]

REACTIONS (1)
  - BREAST CANCER STAGE I [None]
